FAERS Safety Report 6331808-3 (Version None)
Quarter: 2009Q3

REPORT INFORMATION
  Report Type: 
  Country: None (occurrence: None)
  Receive Date: 20090826
  Receipt Date: 20090814
  Transmission Date: 20100115
  Serious: Yes (Hospitalization)
  Sender: FDA-Public Use
  Company Number: GXKR2009HR09232

PATIENT
  Age: 28 Year
  Sex: Female

DRUGS (2)
  1. FLUVOXAMINE (NGX) (FLUVOXAMINE) TABLET, 100MG [Suspect]
     Indication: DEPRESSION
     Dosage: 100 MG, ONCE/SINGLE, ORAL
     Route: 048
  2. PARACETAMOL, PROPYPHENAZONE, CAFFEINE () 250/150/50MG [Suspect]
     Indication: TENSION HEADACHE

REACTIONS (12)
  - ALKALOSIS [None]
  - ANXIETY [None]
  - CONFUSIONAL STATE [None]
  - DRUG INTERACTION [None]
  - HYPOKALAEMIA [None]
  - HYPOTONIA [None]
  - INSOMNIA [None]
  - MUSCULAR WEAKNESS [None]
  - MYOCLONIC EPILEPSY [None]
  - PARAESTHESIA [None]
  - SEROTONIN SYNDROME [None]
  - TREMOR [None]
